FAERS Safety Report 9425147 (Version 2)
Quarter: 2013Q3

REPORT INFORMATION
  Report Type: Spontaneous
  Country: FR (occurrence: FR)
  Receive Date: 20130729
  Receipt Date: 20130923
  Transmission Date: 20140515
  Serious: Yes (Death)
  Sender: FDA-Public Use
  Company Number: FR-TEVA-421739ISR

PATIENT
  Age: 68 Year
  Sex: Female
  Weight: 112 kg

DRUGS (6)
  1. FUROSEMIDE TEVA 40 MG [Suspect]
     Indication: HYPERTENSION
     Dosage: 1 TABLET DAILY; IN THE MORNING
     Route: 048
     Dates: end: 201303
  2. FUROSEMIDE TEVA 40 MG [Suspect]
     Dosage: 3 TABLET DAILY;
     Route: 048
     Dates: start: 201303
  3. TEMESTA [Concomitant]
     Dosage: 1 TABLET DAILY; EVENING
     Route: 048
  4. SERTRALINE [Concomitant]
     Dosage: 1 TABLET DAILY; MORNING
     Route: 048
  5. DUROGESIC [Concomitant]
     Indication: CANCER PAIN
  6. CHEMOTHERAPY [Concomitant]

REACTIONS (7)
  - Pulmonary oedema [Fatal]
  - Bladder cancer stage IV [Fatal]
  - Generalised oedema [Fatal]
  - Oedema [Fatal]
  - Oedema peripheral [Fatal]
  - Somnolence [Fatal]
  - Anuria [Fatal]
